FAERS Safety Report 8920557 (Version 3)
Quarter: 2012Q4

REPORT INFORMATION
  Report Type: 
  Country: GB (occurrence: GB)
  Receive Date: 20121122
  Receipt Date: 20121231
  Transmission Date: 20130627
  Serious: Yes (Other)
  Sender: FDA-Public Use
  Company Number: GB-009507513-1211GBR008271

PATIENT
  Age: 70 Year
  Sex: Female
  Weight: 72.2 kg

DRUGS (21)
  1. NITROGLYCERIN [Suspect]
     Indication: ISCHAEMIC HEART DISEASE PROPHYLAXIS
     Dosage: 400 Microgram, UNK
     Route: 060
  2. ATORVASTATIN [Suspect]
     Indication: DYSLIPIDAEMIA
     Dosage: 80 mg, qd
  3. ATORVASTATIN [Suspect]
     Indication: PROPHYLAXIS
  4. CARBAMAZEPINE [Suspect]
     Indication: NEURALGIA
     Dosage: 100 mg, 4/1day
  5. CARBAMAZEPINE [Suspect]
     Indication: CONVULSION
  6. IBUPROFEN [Suspect]
     Indication: DYSMENORRHOEA
     Dosage: 400 mg, tid
  7. IBUPROFEN [Suspect]
     Indication: PYREXIA
  8. IBUPROFEN [Suspect]
     Indication: PAIN
  9. IBUPROFEN [Suspect]
     Indication: PATENT DUCTUS ARTERIOSUS
  10. IBUPROFEN [Suspect]
     Indication: PERICARDITIS
  11. IBUPROFEN [Suspect]
     Indication: RHEUMATOID ARTHRITIS
  12. LANSOPRAZOLE [Suspect]
     Indication: DUODENAL ULCER
     Dosage: 30 mg, UNK
  13. LANSOPRAZOLE [Suspect]
     Indication: GASTRIC ULCER
  14. LANSOPRAZOLE [Suspect]
     Indication: ULCER
  15. LANSOPRAZOLE [Suspect]
     Indication: GASTROOESOPHAGEAL REFLUX DISEASE
  16. LANSOPRAZOLE [Suspect]
     Indication: GASTRINOMA
  17. LOPERAMIDE HYDROCHLORIDE [Suspect]
     Indication: FUNCTIONAL GASTROINTESTINAL DISORDER
     Dosage: 2 mg, prn
  18. LOPERAMIDE HYDROCHLORIDE [Suspect]
     Indication: DIARRHOEA
  19. LOPERAMIDE HYDROCHLORIDE [Suspect]
     Indication: GASTRINOMA
  20. METFORMIN [Suspect]
     Indication: TYPE 2 DIABETES MELLITUS
     Dosage: 500 mg, bid
  21. ISOSORBIDE MONONITRATE [Suspect]
     Indication: ISCHAEMIC HEART DISEASE PROPHYLAXIS
     Dosage: 1 DF, qd

REACTIONS (1)
  - Colitis microscopic [Not Recovered/Not Resolved]
